FAERS Safety Report 13064471 (Version 1)
Quarter: 2016Q4

REPORT INFORMATION
  Report Type: Spontaneous
  Country: US (occurrence: US)
  Receive Date: 20161223
  Receipt Date: 20161223
  Transmission Date: 20170207
  Serious: No
  Sender: FDA-Public Use
  Company Number: None

PATIENT
  Age: 88 Year
  Sex: Male

DRUGS (1)
  1. TEMOZOLOMIDE 100MG SANDOZ [Suspect]
     Active Substance: TEMOZOLOMIDE
     Indication: CYCLOTHYMIC DISORDER
     Dosage: 100MG 2 TABLETS FOR 5 DAYS ORALLY
     Route: 048
     Dates: start: 20161123, end: 20161213

REACTIONS (1)
  - Pruritus [None]

NARRATIVE: CASE EVENT DATE: 20161101
